FAERS Safety Report 12740608 (Version 1)
Quarter: 2016Q3

REPORT INFORMATION
  Report Type: Spontaneous
  Country: IN (occurrence: IN)
  Receive Date: 20160914
  Receipt Date: 20160914
  Transmission Date: 20161109
  Serious: No
  Sender: FDA-Public Use
  Company Number: IN-LUPIN PHARMACEUTICALS INC.-E2B_00005791

PATIENT
  Sex: 0

DRUGS (2)
  1. DEFENAC [Suspect]
     Active Substance: DICLOFENAC
     Indication: PAIN
     Route: 042
     Dates: start: 201604
  2. DEFENAC [Suspect]
     Active Substance: DICLOFENAC
     Indication: PAIN
     Route: 042
     Dates: start: 201604

REACTIONS (3)
  - Hyperhidrosis [Unknown]
  - Blood pressure increased [Unknown]
  - Heart rate increased [Unknown]

NARRATIVE: CASE EVENT DATE: 201604
